FAERS Safety Report 9265982 (Version 3)
Quarter: 2013Q3

REPORT INFORMATION
  Report Type: Spontaneous
  Country: US (occurrence: US)
  Receive Date: 20130501
  Receipt Date: 20130925
  Transmission Date: 20140515
  Serious: Yes (Death, Hospitalization, Other)
  Sender: FDA-Public Use
  Company Number: US-B.I. PHARMACEUTICALS,INC./RIDGEFIELD-2013-BI-11938BP

PATIENT
  Age: 89 Year
  Sex: Female
  Weight: 48.53 kg

DRUGS (16)
  1. PRADAXA [Suspect]
     Indication: ANTICOAGULANT THERAPY
     Dosage: 300 MG
     Route: 048
     Dates: start: 20110808, end: 20111208
  2. CLONIDINE [Concomitant]
     Dosage: 0.2 MG
  3. FLONASE [Concomitant]
     Route: 045
  4. NEXIUM [Concomitant]
     Dosage: 40 MG
     Route: 048
  5. NORVASC [Concomitant]
     Dosage: 10 MG
     Route: 048
  6. ZOLOFT [Concomitant]
     Dosage: 50 MG
     Route: 048
  7. IMDUR [Concomitant]
     Dosage: 30 MG
     Route: 048
  8. SYNTHROID [Concomitant]
     Dosage: 125 MCG
     Route: 048
  9. ASPIRIN [Concomitant]
     Dosage: 81 MG
     Route: 048
  10. COREG [Concomitant]
     Dosage: 12.5 MG
     Route: 048
  11. LISINOPRIL [Concomitant]
     Dosage: 20 MG
     Route: 048
  12. LASIX [Concomitant]
     Dosage: 80 MG
     Route: 048
  13. POTASSIUM [Concomitant]
     Dosage: 40 MEQ
     Route: 048
  14. VICODIN [Concomitant]
     Route: 048
  15. COMBO UPDRAFTS [Concomitant]
  16. ATIVAN [Concomitant]
     Indication: ANXIETY
     Route: 048

REACTIONS (5)
  - Respiratory failure [Fatal]
  - Pleural effusion [Unknown]
  - Anaemia [Unknown]
  - Thrombocytopenia [Unknown]
  - Haemorrhage [Unknown]
